FAERS Safety Report 8809679 (Version 1)
Quarter: 2012Q4

REPORT INFORMATION
  Report Type: 
  Country: US (occurrence: US)
  Receive Date: 20120926
  Receipt Date: 20120926
  Transmission Date: 20130627
  Serious: Yes (Death)
  Sender: FDA-Public Use
  Company Number: US-ROCHE-1128689

PATIENT
  Sex: Male

DRUGS (4)
  1. AVASTIN [Suspect]
     Indication: COLON CANCER
     Route: 065
     Dates: start: 20040504
  2. XELODA [Suspect]
     Indication: COLON CANCER
     Route: 065
     Dates: start: 200403
  3. 5-FU [Concomitant]
  4. LEUCOVORIN [Concomitant]

REACTIONS (4)
  - Death [Fatal]
  - Thrombocytopenia [Unknown]
  - Diarrhoea [Unknown]
  - Stomatitis [Unknown]
